FAERS Safety Report 23444795 (Version 1)
Quarter: 2024Q1

REPORT INFORMATION
  Report Type: Spontaneous
  Country: US (occurrence: None)
  Receive Date: 20240125
  Receipt Date: 20240125
  Transmission Date: 20240409
  Serious: Yes (unspecified)
  Sender: FDA-Public Use
  Company Number: None

PATIENT
  Age: 57 Year
  Sex: Female
  Weight: 102 kg

DRUGS (1)
  1. VYEPTI [Suspect]
     Active Substance: EPTINEZUMAB-JJMR
     Indication: Infusion
     Dosage: OTHER FREQUENCY : Q3MONTHS;?
     Route: 041
     Dates: start: 20240118, end: 20240118

REACTIONS (10)
  - Incorrect drug administration rate [None]
  - Pruritus [None]
  - Swollen tongue [None]
  - Throat clearing [None]
  - Blood pressure systolic increased [None]
  - Heart rate increased [None]
  - Fatigue [None]
  - Headache [None]
  - Paraesthesia [None]
  - Infusion related reaction [None]

NARRATIVE: CASE EVENT DATE: 20240118
